FAERS Safety Report 5721175-8 (Version None)
Quarter: 2008Q2

REPORT INFORMATION
  Report Type: 
  Country: None (occurrence: None)
  Receive Date: 20080429
  Receipt Date: 20080422
  Transmission Date: 20081010
  Serious: Yes (Hospitalization)
  Sender: FDA-Public Use
  Company Number: B0517679A

PATIENT
  Age: 30 Day
  Sex: Male

DRUGS (6)
  1. ZOVIRAX [Suspect]
     Indication: INFECTION
     Dosage: 75MG THREE TIMES PER DAY
     Route: 042
     Dates: start: 20080217, end: 20080221
  2. CLAFORAN [Suspect]
     Indication: INFECTION
     Dosage: 60MG FOUR TIMES PER DAY
     Route: 042
     Dates: start: 20080215, end: 20080220
  3. PERFALGAN [Suspect]
     Indication: INFECTION
     Dosage: 60MG FOUR TIMES PER DAY
     Route: 042
     Dates: start: 20080215, end: 20080220
  4. FLAGYL [Suspect]
     Indication: INFECTION
     Dosage: 40MG THREE TIMES PER DAY
     Route: 042
     Dates: start: 20080218, end: 20080220
  5. CLAMOXYL [Concomitant]
     Indication: INFECTION
     Route: 065
     Dates: start: 20080215, end: 20080217
  6. GENTAMICIN [Concomitant]
     Indication: INFECTION
     Route: 065
     Dates: start: 20080215, end: 20080217

REACTIONS (2)
  - NEUTROPENIA [None]
  - PLATELET COUNT DECREASED [None]
